FAERS Safety Report 20759394 (Version 1)
Quarter: 2022Q2

REPORT INFORMATION
  Report Type: Other
  Country: US (occurrence: US)
  Receive Date: 20220427
  Receipt Date: 20220427
  Transmission Date: 20220720
  Serious: No
  Sender: FDA-Public Use
  Company Number: US-BioHaven Pharmaceuticals-2022BHV000337

PATIENT

DRUGS (2)
  1. NURTEC ODT [Suspect]
     Active Substance: RIMEGEPANT SULFATE
     Indication: Migraine
     Dosage: PATIENT INITIALLY USED NURTEC ODT AS AN ABORTIVE MEDICATION AND FOUND IT TO BE EFFICACIOUS?ON UNKNOW
     Route: 065
  2. NURTEC ODT [Suspect]
     Active Substance: RIMEGEPANT SULFATE
     Indication: Prophylaxis

REACTIONS (2)
  - Therapeutic product effect variable [Unknown]
  - Therapeutic product effect incomplete [Unknown]
